FAERS Safety Report 9916399 (Version 1)
Quarter: 2014Q1

REPORT INFORMATION
  Report Type: Other
  Country: GB (occurrence: GB)
  Receive Date: 20140221
  Receipt Date: 20140221
  Transmission Date: 20141002
  Serious: Yes (Hospitalization)
  Sender: FDA-Public Use
  Company Number: GB-TARO PHARMACEUTICALS U.S.A., INC-2014SUN00338

PATIENT
  Age: 82 Year
  Sex: Female

DRUGS (19)
  1. WARFARIN [Suspect]
     Indication: PRODUCT USED FOR UNKNOWN INDICATION
     Dosage: 3 MG, UNK
     Route: 048
     Dates: start: 19740401
  2. AMOXICILLIN [Interacting]
     Indication: LOWER RESPIRATORY TRACT INFECTION
     Dosage: 500 MG, TID
     Route: 065
     Dates: start: 20131023
  3. PREDNISOLONE [Interacting]
     Indication: LOWER RESPIRATORY TRACT INFECTION
     Dosage: 30 MG, OD
     Route: 065
     Dates: start: 20131023
  4. CLARITHROMYCIN [Interacting]
     Indication: LOWER RESPIRATORY TRACT INFECTION
     Dosage: UNK
     Route: 065
     Dates: start: 20131030
  5. ALLOPURINOL [Concomitant]
     Dosage: 300 MG, OD
     Route: 048
  6. AMITRIPTYLINE HYDROCHLORIDE [Concomitant]
     Dosage: 25 MG, OD
     Route: 048
  7. ATORVASTATIN [Concomitant]
     Dosage: 40 MG, OD
     Route: 048
  8. BRICANYL [Concomitant]
     Dosage: 1 DF, PRN
     Route: 055
  9. CETRABEN EMOLLIENT CREAM [Concomitant]
     Route: 061
  10. CO-AMILOFRUSE [Concomitant]
     Dosage: 1 DF, OD
     Route: 048
  11. METFORMIN HYDROCHLORIDE [Concomitant]
     Dosage: 500 MG, OD
     Route: 048
  12. MONTELUKAST SODIUM [Concomitant]
     Dosage: 10 MG, OD
  13. OMEPRAZOLE [Concomitant]
     Dosage: 20 MG, OD
  14. ORAMORPH [Concomitant]
     Dosage: 1 DF, 1DOSE/4HOUR
     Route: 048
  15. PARACETAMOL [Concomitant]
     Route: 048
  16. PROCHLORPERAZINE MALEATE [Concomitant]
     Dosage: 5 MG, TID
  17. QUININE SULFATE [Concomitant]
     Dosage: 200 MG, UNK
  18. SYMBICORT [Concomitant]
     Dosage: 1 DF, BID
     Route: 055
  19. TAMOXIFEN [Concomitant]
     Dosage: 20 MG, OD
     Route: 048

REACTIONS (2)
  - Drug interaction [Unknown]
  - International normalised ratio increased [Recovered/Resolved]
